FAERS Safety Report 10775748 (Version 1)
Quarter: 2015Q1

REPORT INFORMATION
  Report Type: Spontaneous
  Country: US (occurrence: US)
  Receive Date: 20150209
  Receipt Date: 20150209
  Transmission Date: 20150721
  Serious: No
  Sender: FDA-Public Use
  Company Number: US-TEVA-539229USA

PATIENT
  Sex: Female

DRUGS (2)
  1. XFACTOR [Concomitant]
  2. COPAXONE [Suspect]
     Active Substance: GLATIRAMER ACETATE
     Indication: MULTIPLE SCLEROSIS

REACTIONS (8)
  - Central nervous system lesion [Unknown]
  - Visual impairment [Unknown]
  - Cognitive disorder [Unknown]
  - Drug ineffective [Unknown]
  - Fatigue [Unknown]
  - Nervous system disorder [Unknown]
  - Memory impairment [Unknown]
  - Speech disorder [Unknown]
